FAERS Safety Report 24638455 (Version 1)
Quarter: 2024Q4

REPORT INFORMATION
  Report Type: Spontaneous
  Country: US (occurrence: None)
  Receive Date: 20241119
  Receipt Date: 20241119
  Transmission Date: 20250114
  Serious: Yes (Hospitalization)
  Sender: Public
  Company Number: None

PATIENT
  Age: 88 Year
  Sex: Male

DRUGS (4)
  1. ACETAMINOPHEN [Suspect]
     Active Substance: ACETAMINOPHEN
     Indication: Pain
  2. ASPIRIN [Suspect]
     Active Substance: ASPIRIN
  3. XANAX [Suspect]
     Active Substance: ALPRAZOLAM
  4. MELATONIN [Suspect]
     Active Substance: MELATONIN

REACTIONS (6)
  - Vomiting [None]
  - Intentional overdose [None]
  - Nausea [None]
  - Dyspepsia [None]
  - Product use issue [None]
  - Anger [None]

NARRATIVE: CASE EVENT DATE: 20241017
